FAERS Safety Report 6608003-3 (Version None)
Quarter: 2010Q1

REPORT INFORMATION
  Report Type: 
  Country: None (occurrence: None)
  Receive Date: 20100301
  Receipt Date: 20100215
  Transmission Date: 20100710
  Serious: Yes (Death)
  Sender: FDA-Public Use
  Company Number: US-JNJFOC-20100209965

PATIENT
  Sex: Female

DRUGS (10)
  1. FENTANYL-100 [Suspect]
     Indication: DRUG USE FOR UNKNOWN INDICATION
     Route: 062
  2. SERTRALINE HCL [Suspect]
     Indication: DRUG USE FOR UNKNOWN INDICATION
     Route: 065
  3. TRAMADOL HCL [Concomitant]
     Indication: DRUG USE FOR UNKNOWN INDICATION
     Route: 065
  4. CODEINE SULFATE [Concomitant]
  5. HYDROCODONE [Concomitant]
  6. MORPHINE [Concomitant]
  7. METHANOL [Concomitant]
  8. ACETONE [Concomitant]
  9. ETHANOL [Concomitant]
  10. ISOPROPYL ALCOHOL COMPOUND LIQUID [Concomitant]

REACTIONS (6)
  - DEATH [None]
  - DRUG ADMINISTERED AT INAPPROPRIATE SITE [None]
  - DRUG TOXICITY [None]
  - OVERDOSE [None]
  - SKIN ULCER [None]
  - WRONG TECHNIQUE IN DRUG USAGE PROCESS [None]
